FAERS Safety Report 12168732 (Version 2)
Quarter: 2016Q2

REPORT INFORMATION
  Report Type: Spontaneous
  Country: US (occurrence: US)
  Receive Date: 20160310
  Receipt Date: 20160401
  Transmission Date: 20160815
  Serious: Yes (Other)
  Sender: FDA-Public Use
  Company Number: US-BAYER-2016-046608

PATIENT
  Age: 19 Year
  Sex: Female

DRUGS (1)
  1. SKYLA [Suspect]
     Active Substance: LEVONORGESTREL
     Indication: CONTRACEPTION
     Dosage: 14 MCG/24HR, CONT
     Route: 015
     Dates: start: 20151124

REACTIONS (7)
  - Genital haemorrhage [None]
  - Device dislocation [None]
  - Pelvic fluid collection [Recovering/Resolving]
  - Endometrial atrophy [None]
  - Ovarian cyst [None]
  - Endometrial thickening [None]
  - Abdominal pain lower [None]

NARRATIVE: CASE EVENT DATE: 20151124
